FAERS Safety Report 5807698-1 (Version None)
Quarter: 2008Q3

REPORT INFORMATION
  Report Type: 
  Country: None (occurrence: None)
  Receive Date: 20080711
  Receipt Date: 20080627
  Transmission Date: 20090109
  Serious: Yes (Hospitalization)
  Sender: FDA-Public Use
  Company Number: GB-AVENTIS-200816355GDDC

PATIENT
  Age: 59 Year
  Sex: Male

DRUGS (17)
  1. EUGLUCON [Suspect]
     Indication: DIABETES MELLITUS
     Route: 048
     Dates: start: 20080311, end: 20080502
  2. SEIBULE [Suspect]
     Indication: DIABETES MELLITUS
     Route: 048
     Dates: start: 20080212, end: 20080502
  3. ZANTAC [Suspect]
     Route: 048
     Dates: start: 20080304, end: 20080428
  4. METHYCOBAL                         /00056201/ [Suspect]
     Route: 048
     Dates: start: 20080308, end: 20080428
  5. CLINORIL [Suspect]
     Route: 048
     Dates: start: 20080309, end: 20080502
  6. LAMISIL [Suspect]
     Route: 048
     Dates: start: 20080317, end: 20080428
  7. CLARITHROMYCIN [Suspect]
     Route: 048
     Dates: start: 20080407, end: 20080428
  8. ONON [Suspect]
     Route: 048
     Dates: start: 20080407, end: 20080428
  9. CLEANAL [Suspect]
     Route: 048
     Dates: start: 20080407, end: 20080428
  10. HOKUNALIN [Suspect]
     Dates: start: 20080407, end: 20080428
  11. CODEINE PHOSPHATE [Suspect]
     Indication: COUGH
     Route: 048
     Dates: start: 20080410, end: 20080428
  12. RESPLEN [Suspect]
     Indication: COUGH
     Route: 048
     Dates: start: 20080412, end: 20080428
  13. MAGLAX [Suspect]
     Indication: CONSTIPATION
     Route: 048
     Dates: start: 20080418, end: 20080428
  14. OXYCONTIN [Suspect]
     Route: 048
     Dates: start: 20080418, end: 20080428
  15. NAVELBINE [Concomitant]
     Dates: start: 20080408, end: 20080415
  16. RANDA [Concomitant]
     Dates: start: 20080408, end: 20080415
  17. AMARYL [Concomitant]
     Dates: start: 20080307, end: 20080311

REACTIONS (1)
  - DRUG RASH WITH EOSINOPHILIA AND SYSTEMIC SYMPTOMS [None]
